FAERS Safety Report 4382036-2 (Version None)
Quarter: 2004Q2

REPORT INFORMATION
  Report Type: 
  Country: None (occurrence: None)
  Receive Date: 20040615
  Receipt Date: 20040602
  Transmission Date: 20050107
  Serious: Yes (Hospitalization)
  Sender: FDA-Public Use
  Company Number: WAES 0406USA00310

PATIENT
  Sex: 0

DRUGS (2)
  1. TRUSOPT [Suspect]
     Dosage: OPHT
     Route: 047
  2. XALATAN [Suspect]

REACTIONS (3)
  - ABDOMINAL PAIN [None]
  - DECREASED ACTIVITY [None]
  - HEART RATE DECREASED [None]
